FAERS Safety Report 18377135 (Version 2)
Quarter: 2020Q4

REPORT INFORMATION
  Report Type: Spontaneous
  Country: US (occurrence: US)
  Receive Date: 20201013
  Receipt Date: 20201026
  Transmission Date: 20210114
  Serious: No
  Sender: FDA-Public Use
  Company Number: US-PFIZER INC-2020393929

PATIENT
  Age: 54 Year
  Sex: Male
  Weight: 98.88 kg

DRUGS (6)
  1. MIRTAZAPINE. [Concomitant]
     Active Substance: MIRTAZAPINE
     Indication: MOOD SWINGS
     Dosage: 45 MG, 1X/DAY, (45 MG AT BEDTIME)
     Dates: start: 2016
  2. VENLAFAXINE [Concomitant]
     Active Substance: VENLAFAXINE HYDROCHLORIDE
     Indication: BIPOLAR DISORDER
     Dosage: 75 MG, 1X/DAY, (75 MG ONCE DAILY)
     Dates: start: 2016
  3. DILANTIN [Suspect]
     Active Substance: PHENYTOIN
     Indication: MENTAL DISORDER
  4. DILANTIN [Suspect]
     Active Substance: PHENYTOIN
     Indication: POST-TRAUMATIC STRESS DISORDER
  5. DILANTIN [Suspect]
     Active Substance: PHENYTOIN
     Indication: SEIZURE
     Dosage: 200 MG, 2X/DAY, (100MG. TWO CAPSULES IN THE MORNING AND 2 AT NIGHT BY MOUTH)
     Route: 048
  6. RISPERIDONE. [Concomitant]
     Active Substance: RISPERIDONE
     Indication: POST-TRAUMATIC STRESS DISORDER
     Dosage: 3 MG, DAILY, (2MG AT BEDTIME AND 1MG IN THE MORNING)
     Dates: start: 2016

REACTIONS (1)
  - Blood pressure abnormal [Unknown]
